FAERS Safety Report 13677363 (Version 1)
Quarter: 2017Q2

REPORT INFORMATION
  Report Type: Spontaneous
  Country: US (occurrence: US)
  Receive Date: 20170621
  Receipt Date: 20170621
  Transmission Date: 20170830
  Serious: Yes (Disabling)
  Sender: FDA-Public Use
  Company Number: None

PATIENT
  Age: 42 Week
  Sex: Female
  Weight: 49.5 kg

DRUGS (1)
  1. KLONOPIN [Suspect]
     Active Substance: CLONAZEPAM
     Indication: ANXIETY
     Route: 048
     Dates: start: 20060423, end: 20150323

REACTIONS (8)
  - Blood pressure increased [None]
  - Suicidal ideation [None]
  - Agoraphobia [None]
  - Impaired work ability [None]
  - Tachycardia [None]
  - Panic reaction [None]
  - Anxiety [None]
  - Psychotic disorder [None]

NARRATIVE: CASE EVENT DATE: 20110723
